FAERS Safety Report 18358085 (Version 5)
Quarter: 2022Q2

REPORT INFORMATION
  Report Type: Report from Study
  Country: US (occurrence: US)
  Receive Date: 20201008
  Receipt Date: 20220504
  Transmission Date: 20220721
  Serious: Yes (Other)
  Sender: FDA-Public Use
  Company Number: US-NOVARTISPH-NVSC2020US268322

PATIENT
  Age: 60 Year
  Sex: Female

DRUGS (2)
  1. ENTRESTO [Suspect]
     Active Substance: SACUBITRIL\VALSARTAN
     Indication: Product used for unknown indication
     Dosage: 50 MG, BID (24/26 MG)
     Route: 048
     Dates: start: 202003
  2. LASIX [Suspect]
     Active Substance: FUROSEMIDE
     Indication: Blood potassium increased
     Dosage: UNK
     Route: 065

REACTIONS (8)
  - Myocardial infarction [Recovered/Resolved]
  - Back pain [Unknown]
  - Dysuria [Unknown]
  - Blood sodium increased [Not Recovered/Not Resolved]
  - Hypertension [Unknown]
  - Asthenia [Recovering/Resolving]
  - Dizziness [Unknown]
  - Blood potassium increased [Unknown]

NARRATIVE: CASE EVENT DATE: 20200301
